FAERS Safety Report 4687375-3 (Version None)
Quarter: 2005Q2

REPORT INFORMATION
  Report Type: 
  Country: None (occurrence: None)
  Receive Date: 20050601
  Receipt Date: 20050601
  Transmission Date: 20051028
  Serious: Yes (Hospitalization, Disabling, Other)
  Sender: FDA-Public Use
  Company Number: 214455

PATIENT
  Age: 47 Year
  Sex: Female

DRUGS (9)
  1. XOLAIR [Suspect]
     Indication: ASTHMA
     Dosage: 300 MG, 1/MONTH, SUBCUTANEOUS
     Route: 058
     Dates: start: 20031120, end: 20040923
  2. PULMICORT [Concomitant]
  3. SEREVENT [Concomitant]
  4. SYNTHROID [Concomitant]
  5. ZYRTEC [Concomitant]
  6. XANAX [Concomitant]
  7. ACCOLATE [Concomitant]
  8. MEDICON (DEXTROMETHORPHAN HYDROBROMIDE) [Concomitant]
  9. SOLU-MEDROL [Concomitant]

REACTIONS (8)
  - ARTHRALGIA [None]
  - DERMATITIS [None]
  - DRUG INEFFECTIVE [None]
  - EOSINOPHIL COUNT INCREASED [None]
  - FATIGUE [None]
  - HYPERSENSITIVITY [None]
  - JOINT SWELLING [None]
  - THERAPY NON-RESPONDER [None]
